FAERS Safety Report 25574008 (Version 2)
Quarter: 2025Q4

REPORT INFORMATION
  Report Type: Report from Study
  Country: CN (occurrence: CN)
  Receive Date: 20250717
  Receipt Date: 20251111
  Transmission Date: 20260118
  Serious: Yes (Hospitalization)
  Sender: ABBVIE
  Company Number: CN-IMMUNOGEN, INC.-CN-IMGN-24-00635

PATIENT
  Age: 53 Year
  Sex: Female
  Weight: 47 kg

DRUGS (5)
  1. ELAHERE [Suspect]
     Active Substance: MIRVETUXIMAB SORAVTANSINE-GYNX
     Indication: Ovarian cancer
     Route: 042
     Dates: start: 20231222, end: 20240206
  2. SODIUM HYALURONATE [Concomitant]
     Active Substance: HYALURONATE SODIUM
     Indication: Eye disorder prophylaxis
     Dosage: 1 DROP, Q4H
     Route: 050
     Dates: start: 20240205, end: 20240209
  3. SODIUM HYALURONATE [Concomitant]
     Active Substance: HYALURONATE SODIUM
     Indication: Eye disorder prophylaxis
     Dosage: 1 DROP, QID
     Dates: start: 20240210, end: 20240213
  4. FLUOROMETHOLONE [Concomitant]
     Active Substance: FLUOROMETHOLONE
     Indication: Eye disorder prophylaxis
     Dosage: UNK, TID
     Route: 050
     Dates: start: 20240205, end: 20240209
  5. FLUOROMETHOLONE [Concomitant]
     Active Substance: FLUOROMETHOLONE
     Indication: Eye disorder prophylaxis
     Dosage: UNK, TID
     Route: 050
     Dates: start: 20240210

REACTIONS (2)
  - Skin mass [Recovered/Resolved]
  - Skin mass [Recovered/Resolved]
